FAERS Safety Report 6411737-7 (Version None)
Quarter: 2009Q4

REPORT INFORMATION
  Report Type: 
  Country: None (occurrence: None)
  Receive Date: 20091020
  Receipt Date: 20091007
  Transmission Date: 20100525
  Serious: Yes (Death, Hospitalization)
  Sender: FDA-Public Use
  Company Number: 2009AC000182

PATIENT
  Age: 59 Year
  Sex: Male

DRUGS (11)
  1. DIGOXIN [Suspect]
     Dosage: 0.25 MG; PO
     Route: 048
  2. COREG [Concomitant]
  3. LEVAQUIN [Concomitant]
  4. OXYCODONE WITH APAP [Concomitant]
  5. CEPHALEXIN [Concomitant]
  6. ASPIRIN [Concomitant]
  7. GLUCOPHAGE [Concomitant]
  8. LASIX [Concomitant]
  9. ZOCOR [Concomitant]
  10. ANCEF [Concomitant]
  11. MONOPRIL [Concomitant]

REACTIONS (26)
  - ABDOMINAL DISCOMFORT [None]
  - ANHEDONIA [None]
  - ANKLE FRACTURE [None]
  - ARTHRALGIA [None]
  - BLOOD UREA INCREASED [None]
  - CARDIAC ARREST [None]
  - CONTUSION [None]
  - CORONARY ARTERY DISEASE [None]
  - COUGH [None]
  - DYSPEPSIA [None]
  - DYSPNOEA [None]
  - ECONOMIC PROBLEM [None]
  - EMOTIONAL DISTRESS [None]
  - EXCORIATION [None]
  - FALL [None]
  - HEAD INJURY [None]
  - INJURY [None]
  - LIVEDO RETICULARIS [None]
  - LOSS OF CONSCIOUSNESS [None]
  - OEDEMA PERIPHERAL [None]
  - PAIN [None]
  - RADIUS FRACTURE [None]
  - ROAD TRAFFIC ACCIDENT [None]
  - TENDERNESS [None]
  - WEIGHT INCREASED [None]
  - WRIST FRACTURE [None]
